FAERS Safety Report 7897674-X (Version None)
Quarter: 2011Q4

REPORT INFORMATION
  Report Type: 
  Country: None (occurrence: None)
  Receive Date: 20111107
  Receipt Date: 20100910
  Transmission Date: 20120403
  Serious: No
  Sender: FDA-Public Use
  Company Number: US-BAYER-201036235NA

PATIENT
  Sex: Female

DRUGS (2)
  1. CLIMARA [Suspect]
     Indication: OSTEOPOROSIS POSTMENOPAUSAL
     Dosage: 0.025 MCG/24HR, UNK
     Route: 062
     Dates: start: 20100501
  2. PROMETRIUM [Suspect]

REACTIONS (3)
  - MIGRAINE [None]
  - HOT FLUSH [None]
  - MIDDLE INSOMNIA [None]
